FAERS Safety Report 5818840-0 (Version None)
Quarter: 2008Q3

REPORT INFORMATION
  Report Type: 
  Country: None (occurrence: None)
  Receive Date: 20080723
  Receipt Date: 20080721
  Transmission Date: 20090109
  Serious: Yes (Other)
  Sender: FDA-Public Use
  Company Number: ES-BRISTOL-MYERS SQUIBB COMPANY-14269112

PATIENT
  Age: 39 Year
  Sex: Male

DRUGS (3)
  1. SUSTIVA CAPS 50 MG [Suspect]
     Indication: HIV INFECTION
     Dosage: 30 HARD CAPSULES
     Route: 048
     Dates: start: 20080418
  2. TRUVADA [Suspect]
     Indication: HIV INFECTION
     Dosage: STRENGTH OF 200MG/245MG, 30 TABS
     Route: 048
     Dates: start: 20080418
  3. SEPTRIN FORTE [Suspect]
     Indication: HIV INFECTION
     Route: 065
     Dates: start: 20080307

REACTIONS (1)
  - RHABDOMYOLYSIS [None]
